FAERS Safety Report 7659151-0 (Version None)
Quarter: 2011Q3

REPORT INFORMATION
  Report Type: 
  Country: None (occurrence: None)
  Receive Date: 20110805
  Receipt Date: 20110729
  Transmission Date: 20111222
  Serious: Yes (Other)
  Sender: FDA-Public Use
  Company Number: FR-GLAXOSMITHKLINE-B0727099A

PATIENT
  Sex: Male

DRUGS (1)
  1. LAMICTAL [Suspect]
     Indication: EPILEPSY
     Dosage: 400MG PER DAY
     Route: 064

REACTIONS (7)
  - HYPOTONIA [None]
  - RESPIRATORY DISTRESS [None]
  - LARYNGEAL DYSPNOEA [None]
  - MATERNAL EXPOSURE DURING PREGNANCY [None]
  - HYPERTONIA [None]
  - DYSPNOEA [None]
  - EYE DISORDER [None]
